FAERS Safety Report 4385604-7 (Version None)
Quarter: 2004Q2

REPORT INFORMATION
  Report Type: 
  Country: None (occurrence: None)
  Receive Date: 20040628
  Receipt Date: 20040621
  Transmission Date: 20050107
  Serious: Yes (Hospitalization)
  Sender: FDA-Public Use
  Company Number: 200411370DE

PATIENT
  Age: 79 Year
  Sex: Female
  Weight: 65.5 kg

DRUGS (2)
  1. CLEXANE [Suspect]
     Indication: THROMBOSIS PROPHYLAXIS
     Route: 058
     Dates: start: 20040223, end: 20040304
  2. DIGITOXIN TAB [Concomitant]
     Dosage: DOSE: OVERDOSE

REACTIONS (2)
  - LEUKOPENIA [None]
  - THROMBOCYTOPENIA [None]
